FAERS Safety Report 8000615-8 (Version None)
Quarter: 2011Q4

REPORT INFORMATION
  Report Type: 
  Country: None (occurrence: None)
  Receive Date: 20111123
  Receipt Date: 20110825
  Transmission Date: 20120403
  Serious: No
  Sender: FDA-Public Use
  Company Number: 336931

PATIENT
  Age: 60 Year
  Sex: Female

DRUGS (4)
  1. ACTOS [Concomitant]
  2. LANTUS (INSULIN ANALOGUE) SUSPENSION FOR INJECTION [Concomitant]
  3. AMARYL [Concomitant]
  4. VICTOZA [Suspect]
     Indication: TYPE 2 DIABETES MELLITUS
     Dosage: SUBCUTANEOUS
     Route: 058

REACTIONS (4)
  - DIARRHOEA [None]
  - CONSTIPATION [None]
  - VOMITING [None]
  - NAUSEA [None]
